FAERS Safety Report 5921282-0 (Version None)
Quarter: 2008Q4

REPORT INFORMATION
  Report Type: 
  Country: None (occurrence: None)
  Receive Date: 20081014
  Receipt Date: 20081003
  Transmission Date: 20090506
  Serious: Yes (Death, Disabling)
  Sender: FDA-Public Use
  Company Number: 2008-03499

PATIENT
  Age: 64 Year
  Sex: Female
  Weight: 48 kg

DRUGS (2)
  1. VELCADE [Suspect]
     Indication: MULTIPLE MYELOMA
     Dosage: 1.4 MG, INTRAVENOUS
     Route: 042
     Dates: start: 20080624, end: 20080704
  2. DECADRON [Concomitant]

REACTIONS (4)
  - INFECTION [None]
  - NEURALGIA [None]
  - NEUTROPENIA [None]
  - QUADRIPLEGIA [None]
